FAERS Safety Report 5346603-1 (Version None)
Quarter: 2007Q2

REPORT INFORMATION
  Report Type: 
  Country: None (occurrence: None)
  Receive Date: 20070605
  Receipt Date: 20070525
  Transmission Date: 20071010
  Serious: Yes (Life-Threatening, Hospitalization)
  Sender: FDA-Public Use
  Company Number: BR-PFIZER INC-2006103423

PATIENT
  Sex: Male
  Weight: 75 kg

DRUGS (2)
  1. SU-011,248 [Suspect]
     Indication: METASTATIC RENAL CELL CARCINOMA
     Route: 048
  2. TENOXICAM [Suspect]
     Indication: BACK PAIN
     Route: 048
     Dates: start: 20060816, end: 20060823

REACTIONS (1)
  - RENAL FAILURE ACUTE [None]
